FAERS Safety Report 9225671 (Version 12)
Quarter: 2015Q3

REPORT INFORMATION
  Report Type: Spontaneous
  Country: US (occurrence: US)
  Receive Date: 20130411
  Receipt Date: 20150813
  Transmission Date: 20151125
  Serious: Yes (Hospitalization, Other)
  Sender: FDA-Public Use
  Company Number: US-GLAXOSMITHKLINE-A1019637A

PATIENT
  Age: 43 Year
  Sex: Female
  Weight: 66 kg

DRUGS (13)
  1. FLOLAN [Suspect]
     Active Substance: EPOPROSTENOL SODIUM
     Dosage: UNK
     Dates: start: 20070529
  2. FLOLAN [Suspect]
     Active Substance: EPOPROSTENOL SODIUM
     Dosage: UNK
     Dates: start: 20070529
  3. FLOLAN [Suspect]
     Active Substance: EPOPROSTENOL SODIUM
     Dosage: 18 NG/KG/MIN CONTINUOUS; CONCENTRATION: 45,000 NG/ML; PUMP RATE: 76 ML/DAY; VIAL STRENGTH: 1.5 MG
     Route: 042
     Dates: start: 20070616
  4. REVATIO [Concomitant]
     Active Substance: SILDENAFIL CITRATE
  5. FLOLAN [Suspect]
     Active Substance: EPOPROSTENOL SODIUM
     Dosage: 25 NG/KG/MIN
  6. FLOLAN [Suspect]
     Active Substance: EPOPROSTENOL SODIUM
     Indication: PULMONARY ARTERIAL HYPERTENSION
     Dosage: CONCENTRATION: 45,000 NG/MLVIAL STRENGTH: 1.5MG18 NG/KG/MIN AT A PUMP RATE OF 76 ML PER DAY
     Route: 065
     Dates: start: 20070529
  7. FLOLAN [Suspect]
     Active Substance: EPOPROSTENOL SODIUM
     Dosage: UNK
     Dates: start: 20070616
  8. FLOLAN [Suspect]
     Active Substance: EPOPROSTENOL SODIUM
     Dosage: UNK
     Dates: start: 20070529
  9. LETAIRIS [Concomitant]
     Active Substance: AMBRISENTAN
  10. FLOLAN [Suspect]
     Active Substance: EPOPROSTENOL SODIUM
     Dosage: UNK
  11. FLOLAN [Suspect]
     Active Substance: EPOPROSTENOL SODIUM
     Dosage: 22.5 NG/KG/MIN (CONCENTRATION 60000 NG/ML, PUMP RATE 71 ML/DAY, VIAL STRENGTH 1.5 MG), CO
     Route: 042
  12. COUMADIN [Concomitant]
     Active Substance: WARFARIN SODIUM
  13. SILDENAFIL. [Concomitant]
     Active Substance: SILDENAFIL

REACTIONS (16)
  - Pneumonia [Recovered/Resolved]
  - Dry skin [Unknown]
  - Multiple sclerosis [Unknown]
  - Mental status changes [Recovered/Resolved]
  - Nasopharyngitis [Unknown]
  - Pulmonary hypertension [Recovered/Resolved]
  - Skin ulcer [Recovered/Resolved]
  - Bedridden [Not Recovered/Not Resolved]
  - Medical device complication [Recovered/Resolved]
  - Catheter site haemorrhage [Recovered/Resolved]
  - Catheter site dryness [Unknown]
  - Hospitalisation [Recovered/Resolved]
  - Weight increased [Unknown]
  - Catheter site pruritus [Unknown]
  - Pruritus [Unknown]
  - Fluid retention [Recovered/Resolved]

NARRATIVE: CASE EVENT DATE: 20130403
